FAERS Safety Report 11102841 (Version 1)
Quarter: 2015Q2

REPORT INFORMATION
  Report Type: Spontaneous
  Country: US (occurrence: US)
  Receive Date: 20150511
  Receipt Date: 20150511
  Transmission Date: 20150821
  Serious: Yes (Hospitalization)
  Sender: FDA-Public Use
  Company Number: US-JNJFOC-20150500994

PATIENT
  Sex: Female

DRUGS (1)
  1. TYLENOL WITH CODEINE [Suspect]
     Active Substance: ACETAMINOPHEN\CODEINE PHOSPHATE
     Indication: PAIN
     Dosage: EVERY 8 HOURS AS NEEDED
     Route: 048
     Dates: start: 201210

REACTIONS (4)
  - Asthma [Unknown]
  - Haemorrhage [Unknown]
  - Pruritus [Unknown]
  - Urticaria [Unknown]
